FAERS Safety Report 17914794 (Version 2)
Quarter: 2021Q1

REPORT INFORMATION
  Report Type: Spontaneous
  Country: US (occurrence: US)
  Receive Date: 20200619
  Receipt Date: 20210101
  Transmission Date: 20210419
  Serious: No
  Sender: FDA-Public Use
  Company Number: US-LUPIN PHARMACEUTICALS INC.-2020-02730

PATIENT
  Age: 68 Year
  Sex: Female

DRUGS (2)
  1. DULOXETINE DELAYED?RELEASE DELAYED?RELEASE [Suspect]
     Active Substance: DULOXETINE HYDROCHLORIDE
     Indication: DEPRESSION
     Dosage: 60 MILLIGRAM, QD (NEW REFILL)
     Route: 048
     Dates: start: 20200521
  2. DULOXETINE DELAYED?RELEASE DELAYED?RELEASE [Suspect]
     Active Substance: DULOXETINE HYDROCHLORIDE
     Indication: ANXIETY
     Dosage: 60 MILLIGRAM, QD
     Route: 048

REACTIONS (5)
  - Gastrooesophageal reflux disease [Recovered/Resolved]
  - Product quality issue [Unknown]
  - Depression [Recovered/Resolved]
  - Abnormal dreams [Recovered/Resolved]
  - Cough [Recovered/Resolved]

NARRATIVE: CASE EVENT DATE: 20200521
